FAERS Safety Report 23202673 (Version 1)
Quarter: 2023Q4

REPORT INFORMATION
  Report Type: Other
  Country: CN (occurrence: None)
  Receive Date: 20231120
  Receipt Date: 20231120
  Transmission Date: 20240110
  Serious: Yes (Other)
  Sender: FDA-Public Use
  Company Number: CN-ROCHE-3459974

PATIENT
  Age: 29 Year
  Sex: Female
  Weight: 46 kg

DRUGS (8)
  1. TOCILIZUMAB [Suspect]
     Active Substance: TOCILIZUMAB
     Indication: COVID-19
     Dosage: 400 MGX2 (AFTER 12 HRS)
     Route: 065
  2. MICAFUNGIN [Concomitant]
     Active Substance: MICAFUNGIN SODIUM
  3. MYCOPHENOLIC ACID [Concomitant]
     Active Substance: MYCOPHENOLIC ACID
  4. NIRMATRELVIR\RITONAVIR [Concomitant]
     Active Substance: NIRMATRELVIR\RITONAVIR
  5. UNSPECIFIED INGREDIENT [Concomitant]
     Active Substance: UNSPECIFIED INGREDIENT
  6. GANCICLOVIR [Concomitant]
     Active Substance: GANCICLOVIR
  7. VORICONAZOLE [Concomitant]
     Active Substance: VORICONAZOLE
  8. AZITHROMYCIN [Concomitant]
     Active Substance: AZITHROMYCIN

REACTIONS (3)
  - Thrombocytopenia [Unknown]
  - Staphylococcal infection [Recovering/Resolving]
  - Off label use [Unknown]
